FAERS Safety Report 11227837 (Version 1)
Quarter: 2015Q2

REPORT INFORMATION
  Report Type: Spontaneous
  Country: IT (occurrence: IT)
  Receive Date: 20150630
  Receipt Date: 20150630
  Transmission Date: 20150821
  Serious: Yes (Hospitalization)
  Sender: FDA-Public Use
  Company Number: IT-RANBAXY-2015RR-91750

PATIENT

DRUGS (2)
  1. ALPRAZOLAM. [Suspect]
     Active Substance: ALPRAZOLAM
     Indication: SUICIDE ATTEMPT
     Dosage: 20 ML, TOTAL
     Route: 048
     Dates: start: 20141210, end: 20141210
  2. SINTROM [Suspect]
     Active Substance: ACENOCOUMAROL
     Indication: SUICIDE ATTEMPT
     Dosage: 5 DF, TOTAL
     Route: 048
     Dates: start: 20141210, end: 20141210

REACTIONS (5)
  - Drug abuse [Unknown]
  - Head injury [Unknown]
  - Sopor [Unknown]
  - Drop attacks [Unknown]
  - Suicide attempt [Unknown]

NARRATIVE: CASE EVENT DATE: 20141210
